FAERS Safety Report 9713693 (Version 1)
Quarter: 2013Q4

REPORT INFORMATION
  Report Type: Spontaneous
  Country: CH (occurrence: CH)
  Receive Date: 20131126
  Receipt Date: 20131126
  Transmission Date: 20140711
  Serious: Yes (Hospitalization)
  Sender: FDA-Public Use
  Company Number: CH-BRISTOL-MYERS SQUIBB COMPANY-19815620

PATIENT
  Age: 20 Year
  Sex: Female

DRUGS (4)
  1. ABILIFY [Suspect]
     Indication: HALLUCINATION, AUDITORY
     Route: 048
     Dates: start: 201304, end: 20131005
  2. EUTHYROX [Interacting]
     Indication: HYPOTHYROIDISM
     Route: 048
  3. DESVENLAFAXINE SUCCINATE [Interacting]
     Indication: DEPRESSION
     Route: 048
     Dates: start: 2011, end: 20131005
  4. BUPROPION [Interacting]
     Indication: DEPRESSION
     Route: 048
     Dates: start: 2011, end: 20131005

REACTIONS (2)
  - Convulsion [Recovered/Resolved]
  - Drug interaction [Unknown]
